FAERS Safety Report 25795918 (Version 2)
Quarter: 2025Q4

REPORT INFORMATION
  Report Type: Spontaneous
  Country: CA (occurrence: CA)
  Receive Date: 20250912
  Receipt Date: 20251111
  Transmission Date: 20260118
  Serious: Yes (Other)
  Sender: CELLTRION
  Company Number: CA-PFIZER INC-202300360305

PATIENT

DRUGS (1)
  1. INFLECTRA [Suspect]
     Active Substance: INFLIXIMAB-DYYB
     Indication: Crohn^s disease
     Dosage: 10 MG/KG WEEK 6 ONLY, THEN EVERY 8 WEEKS
     Route: 042
     Dates: start: 20231210

REACTIONS (3)
  - Breast cancer [Unknown]
  - Off label use [Unknown]
  - Off label use [Unknown]
